FAERS Safety Report 20883446 (Version 2)
Quarter: 2022Q2

REPORT INFORMATION
  Report Type: Report from Study
  Country: MZ (occurrence: MZ)
  Receive Date: 20220527
  Receipt Date: 20220603
  Transmission Date: 20220720
  Serious: Yes (Death)
  Sender: FDA-Public Use
  Company Number: MZ-009507513-2205MOZ005588

PATIENT
  Age: 69 Year
  Sex: Male
  Weight: 44 kg

DRUGS (3)
  1. IVERMECTIN [Suspect]
     Active Substance: IVERMECTIN
     Indication: Malaria
     Dosage: UNK
     Route: 048
     Dates: start: 20220406, end: 20220406
  2. IVERMECTIN [Suspect]
     Active Substance: IVERMECTIN
     Dosage: UNK
     Route: 048
     Dates: start: 20220510, end: 20220510
  3. ALBENDAZOLE [Suspect]
     Active Substance: ALBENDAZOLE
     Indication: Malaria
     Dosage: UNK

REACTIONS (2)
  - Aspiration [Fatal]
  - Alcoholic coma [Fatal]

NARRATIVE: CASE EVENT DATE: 20220501
